FAERS Safety Report 6201571-5 (Version None)
Quarter: 2009Q2

REPORT INFORMATION
  Report Type: 
  Country: None (occurrence: None)
  Receive Date: 20090526
  Receipt Date: 20090515
  Transmission Date: 20091009
  Serious: Yes (Hospitalization)
  Sender: FDA-Public Use
  Company Number: US-AVENTIS-200914300GDDC

PATIENT
  Age: 60 Year
  Sex: Male
  Weight: 92.3 kg

DRUGS (16)
  1. TAXOTERE [Suspect]
     Route: 042
     Dates: start: 20090204, end: 20090408
  2. PREDNISONE [Suspect]
     Route: 048
     Dates: start: 20090204, end: 20090415
  3. CODE UNBROKEN [Suspect]
     Route: 048
     Dates: start: 20090204, end: 20090415
  4. DEXAMETHASONE 4MG TAB [Suspect]
     Indication: PREMEDICATION
     Dates: start: 20090204, end: 20090408
  5. AMLODIPINE [Concomitant]
  6. COMPAZINE [Concomitant]
     Indication: NAUSEA
     Dosage: DOSE: EVERY 4 HOURS
  7. GOSERELIN [Concomitant]
     Dates: end: 20090204
  8. IBUPROFEN [Concomitant]
  9. LASIX [Concomitant]
  10. LIPITOR [Concomitant]
  11. METFORMIN HCL [Concomitant]
  12. OMEPRAZOLE [Concomitant]
  13. POTASSIUM CHLORIDE [Concomitant]
  14. POTASSIUM CHLORIDE [Concomitant]
  15. TYLENOL [Concomitant]
     Dosage: DOSE: TWICE A DAY
  16. ZETIA [Concomitant]

REACTIONS (17)
  - BLOOD CREATININE INCREASED [None]
  - DEHYDRATION [None]
  - DIARRHOEA [None]
  - DYSPNOEA [None]
  - FATIGUE [None]
  - HAEMOGLOBIN DECREASED [None]
  - HYPOKALAEMIA [None]
  - HYPOTENSION [None]
  - HYPOXIA [None]
  - LETHARGY [None]
  - LUNG INFILTRATION [None]
  - NAUSEA [None]
  - NEUTROPENIA [None]
  - PYREXIA [None]
  - RENAL FAILURE [None]
  - VOMITING [None]
  - WHITE BLOOD CELL COUNT DECREASED [None]
